FAERS Safety Report 23556096 (Version 1)
Quarter: 2024Q1

REPORT INFORMATION
  Report Type: Spontaneous
  Country: FR (occurrence: FR)
  Receive Date: 20240222
  Receipt Date: 20240222
  Transmission Date: 20240409
  Serious: Yes (Hospitalization)
  Sender: FDA-Public Use
  Company Number: None

PATIENT

DRUGS (8)
  1. CANNABIDIOL [Interacting]
     Active Substance: CANNABIDIOL
     Indication: Epilepsy
     Dosage: 4 MILLIGRAM, Q6H
     Route: 048
     Dates: start: 20230825, end: 20230916
  2. MIDAZOLAM [Interacting]
     Active Substance: MIDAZOLAM
     Indication: Sedation
     Dosage: 10 MILLIGRAM, HOURLY
     Route: 042
     Dates: start: 20230829, end: 20230830
  3. VALPROATE SODIUM [Interacting]
     Active Substance: VALPROATE SODIUM
     Indication: Epilepsy
     Dosage: 4 GRAM, QD
     Route: 042
     Dates: start: 20230828
  4. LACOSAMIDE [Interacting]
     Active Substance: LACOSAMIDE
     Indication: Epilepsy
     Dosage: 200 MILLIGRAM, BID
     Route: 048
     Dates: start: 20230828
  5. FYCOMPA [Interacting]
     Active Substance: PERAMPANEL
     Indication: Epilepsy
     Dosage: 12 MILLIGRAM, QD
     Route: 048
     Dates: start: 20230827
  6. ZONEGRAN [Interacting]
     Active Substance: ZONISAMIDE
     Indication: Epilepsy
     Dosage: 200 MILLIGRAM, BID
     Route: 048
     Dates: end: 20230827
  7. LEVETIRACETAM [Interacting]
     Active Substance: LEVETIRACETAM
     Indication: Epilepsy
     Dosage: 1750 MILLIGRAM, BID
     Route: 042
     Dates: start: 20230825, end: 20230911
  8. RIVOTRIL [Interacting]
     Active Substance: CLONAZEPAM
     Indication: Epilepsy
     Dosage: 2 MILLIGRAM, Q6H
     Route: 048
     Dates: start: 20230828

REACTIONS (1)
  - Psychotic disorder [Not Recovered/Not Resolved]

NARRATIVE: CASE EVENT DATE: 20230828
